FAERS Safety Report 5378575-8 (Version None)
Quarter: 2007Q3

REPORT INFORMATION
  Report Type: 
  Country: None (occurrence: None)
  Receive Date: 20070705
  Receipt Date: 20070626
  Transmission Date: 20080115
  Serious: Yes (Other)
  Sender: FDA-Public Use
  Company Number: JP-JNJFOC-20070700031

PATIENT
  Sex: Male
  Weight: 54 kg

DRUGS (26)
  1. ITRACONAZOLE [Suspect]
     Indication: PROPHYLAXIS
     Route: 048
  2. VELCADE [Suspect]
     Route: 042
  3. VELCADE [Suspect]
     Route: 042
  4. VELCADE [Suspect]
     Route: 042
  5. VELCADE [Suspect]
     Route: 042
  6. VELCADE [Suspect]
     Route: 042
  7. VELCADE [Suspect]
     Route: 042
  8. VELCADE [Suspect]
     Route: 042
  9. VELCADE [Suspect]
     Route: 042
  10. VELCADE [Suspect]
     Route: 042
  11. VELCADE [Suspect]
     Route: 042
  12. VELCADE [Suspect]
     Route: 042
  13. VELCADE [Suspect]
     Route: 042
  14. VELCADE [Suspect]
     Indication: MULTIPLE MYELOMA
     Route: 042
  15. ZOLPIDEM [Concomitant]
     Indication: INSOMNIA
     Route: 048
  16. BAKTAR [Concomitant]
     Indication: PROPHYLAXIS
     Route: 048
  17. LOPEMIN [Concomitant]
     Indication: DIARRHOEA
     Route: 048
  18. AMARYL [Concomitant]
     Route: 048
  19. PENTAZOCINE LACTATE [Concomitant]
     Route: 048
  20. PURSENNID [Concomitant]
     Route: 048
  21. MUCOSTA [Concomitant]
     Indication: NAUSEA
     Route: 048
  22. BIOFERMIN R [Concomitant]
     Route: 048
  23. BIOFERMIN R [Concomitant]
     Indication: DIARRHOEA
     Route: 048
  24. LEVOFLOXACIN [Concomitant]
     Indication: DIARRHOEA
     Route: 048
  25. SLOW-K [Concomitant]
     Route: 048
  26. THALIDOMIDE [Concomitant]
     Route: 048

REACTIONS (5)
  - BLOOD CREATINE INCREASED [None]
  - BLOOD POTASSIUM DECREASED [None]
  - ELECTROLYTE IMBALANCE [None]
  - HAEMOGLOBIN DECREASED [None]
  - INTERCOSTAL NEURALGIA [None]
